FAERS Safety Report 7496507-3 (Version None)
Quarter: 2011Q2

REPORT INFORMATION
  Report Type: 
  Country: None (occurrence: None)
  Receive Date: 20110520
  Receipt Date: 20110520
  Transmission Date: 20111010
  Serious: Yes (Death, Life-Threatening)
  Sender: FDA-Public Use
  Company Number: None

PATIENT
  Age: 83 Year
  Sex: Male
  Weight: 65.9 kg

DRUGS (3)
  1. CLOPIDOGREL [Suspect]
     Indication: ATRIAL FIBRILLATION
     Dosage: MG EVERY DAY PO
     Route: 048
     Dates: start: 20110223, end: 20110518
  2. CLOPIDOGREL [Suspect]
     Indication: MITRAL VALVE REPLACEMENT
     Dosage: MG EVERY DAY PO
     Route: 048
     Dates: start: 20110223, end: 20110518
  3. HEPARIN [Suspect]
     Indication: DEEP VEIN THROMBOSIS
     Dosage: 11 ML PRN IV
     Route: 042
     Dates: start: 20110516, end: 20110517

REACTIONS (4)
  - HAEMORRHAGE [None]
  - INTERNATIONAL NORMALISED RATIO INCREASED [None]
  - GASTRIC HAEMORRHAGE [None]
  - PULMONARY OEDEMA [None]
